FAERS Safety Report 4808383-5 (Version None)
Quarter: 2005Q4

REPORT INFORMATION
  Report Type: 
  Country: None (occurrence: None)
  Receive Date: 20051021
  Receipt Date: 20031030
  Transmission Date: 20060501
  Serious: No
  Sender: FDA-Public Use
  Company Number: FR_031003084

PATIENT
  Age: 36 Year
  Sex: Female

DRUGS (7)
  1. ZYPREXA [Suspect]
     Indication: SCHIZOPHRENIA
     Dosage: 5 MG/DAY
     Dates: start: 20031002, end: 20031021
  2. CLOPIXOL(ZUCLOPENTHIXOL DECANOATE) [Concomitant]
  3. DEPO-PROVERA SUSPENSION/INJ [Concomitant]
  4. CITALOPRAM HYDROBROMIDE [Concomitant]
  5. ATHYMIL(MIANSERIN HYDROCHLORIDE) [Concomitant]
  6. TRANXENE [Concomitant]
  7. DEPAKENE [Concomitant]

REACTIONS (2)
  - LEUKOPENIA [None]
  - NEUTROPENIA [None]
